FAERS Safety Report 7909194-4 (Version None)
Quarter: 2011Q4

REPORT INFORMATION
  Report Type: 
  Country: None (occurrence: None)
  Receive Date: 20111111
  Receipt Date: 20110707
  Transmission Date: 20120403
  Serious: No
  Sender: FDA-Public Use
  Company Number: US-GLAXOSMITHKLINE-A0936760A

PATIENT
  Sex: Male

DRUGS (2)
  1. COREG [Suspect]
     Indication: BLOOD PRESSURE
     Route: 065
     Dates: start: 19990101
  2. CARVEDILOL [Suspect]
     Indication: BLOOD PRESSURE
     Route: 048

REACTIONS (1)
  - CARDIAC DISORDER [None]
